FAERS Safety Report 17725200 (Version 2)
Quarter: 2020Q2

REPORT INFORMATION
  Report Type: Spontaneous
  Country: CN (occurrence: CN)
  Receive Date: 20200429
  Receipt Date: 20200515
  Transmission Date: 20200714
  Serious: Yes (Other)
  Sender: FDA-Public Use
  Company Number: CN-ASTRAZENECA-2020SE54052

PATIENT
  Age: 22241 Day
  Sex: Female
  Weight: 63 kg

DRUGS (7)
  1. LEVOCETIRIZINE [Concomitant]
     Active Substance: LEVOCETIRIZINE
     Indication: URTICARIA CHRONIC
     Route: 048
  2. IRESSA [Suspect]
     Active Substance: GEFITINIB
     Route: 048
     Dates: start: 201910
  3. ANTI-ALLERGY DRUGS [Concomitant]
     Indication: URTICARIA CHRONIC
     Route: 048
  4. ANTI-ALLERGY DRUGS [Concomitant]
     Indication: HYPERSENSITIVITY
     Route: 048
  5. LORATADINE. [Concomitant]
     Active Substance: LORATADINE
     Indication: URTICARIA CHRONIC
     Route: 048
  6. LEVOCETIRIZINE [Concomitant]
     Active Substance: LEVOCETIRIZINE
     Indication: HYPERSENSITIVITY
     Route: 048
  7. LORATADINE. [Concomitant]
     Active Substance: LORATADINE
     Indication: HYPERSENSITIVITY
     Route: 048

REACTIONS (8)
  - Metastases to lung [Unknown]
  - Metastases to pleura [Unknown]
  - Pulmonary mass [Unknown]
  - Pancreatic mass [Unknown]
  - Malignant pleural effusion [Unknown]
  - Metastases to lymph nodes [Unknown]
  - Drug ineffective [Unknown]
  - Metastases to pancreas [Unknown]

NARRATIVE: CASE EVENT DATE: 20191120
